FAERS Safety Report 7987291-5 (Version None)
Quarter: 2011Q4

REPORT INFORMATION
  Report Type: 
  Country: None (occurrence: None)
  Receive Date: 20111216
  Receipt Date: 20110330
  Transmission Date: 20120403
  Serious: No
  Sender: FDA-Public Use
  Company Number: US-BRISTOL-MYERS SQUIBB COMPANY-15645542

PATIENT
  Sex: Male

DRUGS (2)
  1. CYMBALTA [Suspect]
     Indication: MAJOR DEPRESSION
  2. ABILIFY [Suspect]
     Indication: MAJOR DEPRESSION
     Dosage: STARTED AS 5MG AND THEN INCREASED TO 10MG

REACTIONS (3)
  - LETHARGY [None]
  - WEIGHT DECREASED [None]
  - SOMNOLENCE [None]
